FAERS Safety Report 20735830 (Version 1)
Quarter: 2022Q2

REPORT INFORMATION
  Report Type: Spontaneous
  Country: ES (occurrence: ES)
  Receive Date: 20220421
  Receipt Date: 20220421
  Transmission Date: 20220720
  Serious: Yes (Hospitalization)
  Sender: FDA-Public Use
  Company Number: None

PATIENT
  Age: 69 Year
  Sex: Male
  Weight: 71.5 kg

DRUGS (10)
  1. AMOXICILLIN\CLAVULANIC ACID [Suspect]
     Active Substance: AMOXICILLIN\CLAVULANIC ACID
     Indication: Phlebitis
     Dosage: 3 DOSAGE FORMS DAILY; 1 TABLET EVERY 8 HOURS, FORM STRENGTH 875 MG/125 MG TABLET, DURATION- 6 DAYS
     Route: 048
     Dates: start: 20220309, end: 20220314
  2. BRINTELLIX [Concomitant]
     Active Substance: VORTIOXETINE HYDROBROMIDE
     Dosage: 1 DOSAGE FORMS DAILY; 1-0-0,  FORM STRENGTH 10 MG, 28 TABLETS
     Dates: start: 20210101
  3. IPRATROPIUM BROMIDE ALDO-UNION [Concomitant]
     Dosage: 9 DOSAGE FORMS DAILY; 3-3-3, FORM STRENGTH- 250 MICROGRAMS/ML, BY NEBULIZER, 20 AMPOULES OF 1 ML
     Dates: start: 20210101
  4. FERROUS SULFATE [Concomitant]
     Active Substance: FERROUS SULFATE
     Dosage: 1 DOSAGE FORMS DAILY; 1-0-0, FORM STRENGTH 80 MG, 30 TABLETS
     Dates: start: 20210101
  5. FLUTICASONE ALDO-UNION [Concomitant]
     Dosage: 6 DOSAGE FORMS DAILY; 2-2-2, FORM STRENGTH 1 MG/ML SUSPENSION FOR INHALATION BY NEBULIZER, 20 AMPOUL
     Route: 055
     Dates: start: 20210101
  6. PARACETAMOL CINFA [Concomitant]
     Dosage: 3 DOSAGE FORMS DAILY; 1 EVERY 8 HOURS, 1 G TABLETS EFG , 20 TABLETS
     Dates: start: 20210101
  7. CALCIFEDIOL FAES [Concomitant]
     Dosage: BLANDAS EFG, 10 CAPSULES, FORM STRENGTH -0.266 MG
     Dates: start: 20210101
  8. OMEPRAZOL ALTER [Concomitant]
     Dosage: 1 DOSAGE FORMS DAILY; 1-0-0, FORM STRENGTH 20 MG, EFG 28 CAPSULES (BLISTER AL/AL)
     Dates: start: 20210101
  9. LORMETAZEPAM CINFA [Concomitant]
     Dosage: 1 DOSAGE FORMS DAILY; 1-0-0, FORM STRENGTH 1 MG EFG TABLETS, 30 TABLETS
     Dates: start: 20210101
  10. LEVOTHYROXINE ARISTO [Concomitant]
     Dosage: 1 DOSAGE FORMS DAILY; 1-0-0; 50 MICROGRAM TABLETS EFG 100 TABLETS
     Dates: start: 20210101

REACTIONS (1)
  - Hepatitis cholestatic [Recovered/Resolved]

NARRATIVE: CASE EVENT DATE: 20220314
